FAERS Safety Report 8251064-9 (Version None)
Quarter: 2012Q2

REPORT INFORMATION
  Report Type: 
  Country: None (occurrence: None)
  Receive Date: 20120402
  Receipt Date: 20120321
  Transmission Date: 20120825
  Serious: Yes (Other)
  Sender: FDA-Public Use
  Company Number: PHHY2012MX025601

PATIENT
  Sex: Female

DRUGS (2)
  1. LYRICA [Concomitant]
     Indication: HYPOAESTHESIA
     Dosage: 1 DF, DAILY
     Dates: start: 20080301
  2. DIOVAN HCT [Suspect]
     Indication: HYPERTENSION
     Dosage: 1 DF (160MG VALS/12.5MG HYDROCHLOROTHIAZIDE) DAILY

REACTIONS (4)
  - ABDOMINAL DISCOMFORT [None]
  - SPINAL DISORDER [None]
  - EPISTAXIS [None]
  - NEPHROLITHIASIS [None]
